FAERS Safety Report 5514800-8 (Version None)
Quarter: 2007Q4

REPORT INFORMATION
  Report Type: 
  Country: None (occurrence: None)
  Receive Date: 20071113
  Receipt Date: 20071030
  Transmission Date: 20080405
  Serious: Yes (Other)
  Sender: FDA-Public Use
  Company Number: US-SHR-US-2007-038630

PATIENT
  Age: 54 Year
  Sex: Female

DRUGS (3)
  1. BETASERON [Suspect]
     Indication: PROGRESSIVE MULTIPLE SCLEROSIS
     Dosage: 2 MIU, EVERY 2D
     Route: 058
     Dates: start: 20070926
  2. BETASERON [Suspect]
     Dosage: 4 MIU, EVERY 2D
     Route: 058
  3. BETASERON [Suspect]
     Dosage: 6 MIU, EVERY 2D
     Route: 058

REACTIONS (5)
  - ARTHRALGIA [None]
  - HERPES ZOSTER [None]
  - INFLUENZA LIKE ILLNESS [None]
  - NAUSEA [None]
  - NEURALGIA [None]
